FAERS Safety Report 8159587 (Version 4)
Quarter: 2013Q4

REPORT INFORMATION
  Report Type: Report from Study
  Country: CA (occurrence: CA)
  Receive Date: 20110928
  Receipt Date: 20131212
  Transmission Date: 20140711
  Serious: Yes (Other)
  Sender: FDA-Public Use
  Company Number: PHHY2011CA85308

PATIENT
  Age: 57 Year
  Sex: Female

DRUGS (21)
  1. ACLASTA [Suspect]
     Indication: OSTEOPOROSIS
     Dosage: UNK UKN, UNK
     Route: 042
     Dates: start: 20091217
  2. ACLASTA [Suspect]
     Dosage: UNK UKN, UNK
     Route: 042
     Dates: start: 20101216
  3. ACLASTA [Suspect]
     Dosage: UNK UKN, UNK
     Route: 042
     Dates: start: 20111215
  4. ACLASTA [Suspect]
     Dosage: UNK UKN, UNK
     Route: 042
     Dates: start: 20121212
  5. ATACAND [Concomitant]
     Dosage: 16 MG, QD
  6. PREVACID [Concomitant]
     Dosage: 30 MG, QD
  7. ACEBUTOLOL [Concomitant]
     Dosage: 200 MG, BID
  8. NITRAZEPAM [Concomitant]
     Dosage: 10 MG, UNK
  9. ASACOL [Concomitant]
     Dosage: 800 MG, TID
  10. ENTOCORT [Concomitant]
     Dosage: 6 MG, UNK
  11. CORTIFOAM [Concomitant]
     Dosage: UNK UKN, UNK (PRN)
  12. DICETEL [Concomitant]
     Dosage: 50 MG, TID
  13. PREDNISONE [Concomitant]
     Dosage: 10 MG, QD
  14. WELLBUTRIN                         /00700502/ [Concomitant]
     Dosage: 150 MG, BID
  15. SLOW-K [Concomitant]
     Dosage: 600 MG, TID
  16. SYNTHROID [Concomitant]
     Dosage: 150 UG, QD
  17. AMLODIPINE [Concomitant]
     Dosage: 5 MG, QD
  18. APO-GABAPENTIN [Concomitant]
     Dosage: 200 MG, UNK
  19. FERROUS GLUCONATE [Concomitant]
     Dosage: 300 MG, QD
  20. TIMOLOL [Concomitant]
     Dosage: 1 UKN (DROP), QD
  21. FUROSEMIDE [Concomitant]
     Dosage: 40 MG, QD

REACTIONS (8)
  - Foot fracture [Not Recovered/Not Resolved]
  - Ligament sprain [Not Recovered/Not Resolved]
  - Fibula fracture [Not Recovered/Not Resolved]
  - Neuropathic arthropathy [Not Recovered/Not Resolved]
  - Fall [Not Recovered/Not Resolved]
  - Sinusitis [Unknown]
  - Limb discomfort [Unknown]
  - Arthralgia [Unknown]
